FAERS Safety Report 20701575 (Version 1)
Quarter: 2022Q2

REPORT INFORMATION
  Report Type: Spontaneous
  Country: US (occurrence: None)
  Receive Date: 20220411
  Receipt Date: 20220411
  Transmission Date: 20220721
  Serious: Yes (Life-Threatening, Disabling, Other)
  Sender: FDA-Public Use
  Company Number: None

PATIENT
  Age: 62 Year
  Sex: Female
  Weight: 56.7 kg

DRUGS (28)
  1. DESMOPRESSIN ACETATE [Suspect]
     Active Substance: DESMOPRESSIN ACETATE
     Indication: Diabetes insipidus
     Dosage: OTHER QUANTITY : 180 TABLET(S);?FREQUENCY : EVERY 12 HOURS;?
     Route: 048
  2. DESMOPRESSIN [Concomitant]
     Active Substance: DESMOPRESSIN
  3. levothyroxinre [Concomitant]
  4. PRISTIQ EXTENDED-RELEASE [Concomitant]
     Active Substance: DESVENLAFAXINE SUCCINATE
  5. TRAZODONE [Concomitant]
     Active Substance: TRAZODONE HYDROCHLORIDE
  6. ALPRAZOLAM [Concomitant]
     Active Substance: ALPRAZOLAM
  7. amphedam [Concomitant]
  8. amphedamine-dr [Concomitant]
  9. LOSARTAN [Concomitant]
     Active Substance: LOSARTAN
  10. CALCIUM [Concomitant]
     Active Substance: CALCIUM
  11. ZINC [Concomitant]
     Active Substance: ZINC
  12. magnesium fenugreek seed [Concomitant]
  13. IRON [Concomitant]
     Active Substance: IRON
  14. PROBIOTICS NOS [Concomitant]
     Active Substance: PROBIOTICS NOS
  15. turmeric cut cumin [Concomitant]
  16. bosweellia extract [Concomitant]
  17. VITAMIN B12 [Concomitant]
     Active Substance: CYANOCOBALAMIN
  18. C [Concomitant]
  19. HERBALS [Concomitant]
     Active Substance: HERBALS
  20. POTASSIUM [Concomitant]
     Active Substance: POTASSIUM
  21. VITAMIN D3 [Concomitant]
     Active Substance: CHOLECALCIFEROL
  22. C [Concomitant]
  23. cerebra [Concomitant]
  24. CANNABIDIOL [Concomitant]
     Active Substance: CANNABIDIOL
  25. BIOPERINE [Concomitant]
  26. Joint N-11 [Concomitant]
  27. SPIRIVA [Concomitant]
     Active Substance: TIOTROPIUM BROMIDE MONOHYDRATE
  28. ALBUTEROL SULFATE [Concomitant]
     Active Substance: ALBUTEROL SULFATE

REACTIONS (6)
  - Drug ineffective [None]
  - Urinary incontinence [None]
  - Dehydration [None]
  - Electrolyte imbalance [None]
  - Product substitution issue [None]
  - Suspected product quality issue [None]

NARRATIVE: CASE EVENT DATE: 20220209
